FAERS Safety Report 5779847-5 (Version None)
Quarter: 2008Q2

REPORT INFORMATION
  Report Type: 
  Country: None (occurrence: None)
  Receive Date: 20080620
  Receipt Date: 20080609
  Transmission Date: 20081010
  Serious: Yes (Other)
  Sender: FDA-Public Use
  Company Number: PHEH2007US12284

PATIENT
  Sex: Male
  Weight: 65.759 kg

DRUGS (1)
  1. TOBI [Suspect]
     Indication: CYSTIC FIBROSIS
     Dosage: 300 MG, BID
     Dates: start: 20070629, end: 20070910

REACTIONS (17)
  - BALANCE DISORDER [None]
  - BLOOD CREATININE INCREASED [None]
  - CLOSTRIDIAL INFECTION [None]
  - COMPUTERISED TOMOGRAM ABNORMAL [None]
  - DIARRHOEA [None]
  - DRUG LEVEL INCREASED [None]
  - DYSPNOEA EXERTIONAL [None]
  - FALL [None]
  - FEELING ABNORMAL [None]
  - GAIT DISTURBANCE [None]
  - HEADACHE [None]
  - HYPERHIDROSIS [None]
  - LUNG INFILTRATION [None]
  - PYREXIA [None]
  - RENAL INJURY [None]
  - SINUS DISORDER [None]
  - VESTIBULAR DISORDER [None]
